FAERS Safety Report 22255051 (Version 1)
Quarter: 2023Q2

REPORT INFORMATION
  Report Type: Spontaneous
  Country: US (occurrence: None)
  Receive Date: 20230426
  Receipt Date: 20230426
  Transmission Date: 20230721
  Serious: No
  Sender: FDA-Public Use
  Company Number: None

PATIENT
  Age: 46 Year
  Sex: Female
  Weight: 65.25 kg

DRUGS (1)
  1. DEXTROAMPHET SACCHARAT, AMPHET ASPARTATE, DEXTROAMPHET SULFATE AND AMP [Suspect]
     Active Substance: AMPHETAMINE ASPARTATE\AMPHETAMINE ASPARTATE MONOHYDRATE\AMPHETAMINE SULFATE\DEXTROAMPHETAMINE SACCHA
     Indication: Attention deficit hyperactivity disorder
     Dosage: OTHER QUANTITY : 60 TABLET(S);?FREQUENCY : TWICE A DAY;?
     Route: 048

REACTIONS (4)
  - Drug ineffective [None]
  - Headache [None]
  - Abdominal pain upper [None]
  - Lethargy [None]

NARRATIVE: CASE EVENT DATE: 20230410
